FAERS Safety Report 23877383 (Version 1)
Quarter: 2024Q2

REPORT INFORMATION
  Report Type: Spontaneous
  Country: US (occurrence: US)
  Receive Date: 20240521
  Receipt Date: 20240521
  Transmission Date: 20240716
  Serious: No
  Sender: FDA-Public Use
  Company Number: US-GRAVITIPHARMA-GRA-2311-US-SPO-0041

PATIENT

DRUGS (3)
  1. GABAPENTIN [Suspect]
     Active Substance: GABAPENTIN
     Indication: Neuropathy peripheral
     Dates: start: 20231123
  2. GABAPENTIN [Suspect]
     Active Substance: GABAPENTIN
     Indication: Hypoaesthesia
  3. LORATADINE [Concomitant]
     Active Substance: LORATADINE

REACTIONS (2)
  - Drug ineffective [Unknown]
  - Product quality issue [Unknown]

NARRATIVE: CASE EVENT DATE: 20231128
